FAERS Safety Report 20811032 (Version 1)
Quarter: 2022Q2

REPORT INFORMATION
  Report Type: Spontaneous
  Country: NO (occurrence: NO)
  Receive Date: 20220510
  Receipt Date: 20220510
  Transmission Date: 20220721
  Serious: Yes (Hospitalization)
  Sender: FDA-Public Use
  Company Number: None

PATIENT
  Age: 83 Year
  Sex: Male

DRUGS (3)
  1. OMEPRAZOLE MAGNESIUM [Interacting]
     Active Substance: OMEPRAZOLE MAGNESIUM
     Indication: Barrett^s oesophagus
     Dosage: 20 MG, QD (CONTINUED USE OF MEDICINAL PRODUCT)
     Route: 048
     Dates: start: 20220325
  2. CITALOPRAM [Interacting]
     Active Substance: CITALOPRAM HYDROBROMIDE
     Indication: Depression
     Dosage: 40 MG, QD (CONTINUED USE OF MEDICINAL PRODUCT)
     Route: 048
     Dates: start: 19961030
  3. IMOVANE [Interacting]
     Active Substance: ZOPICLONE
     Indication: Sleep disorder
     Dosage: 375 MG (CONTINUED USE OF MEDICINAL PRODUCT)
     Route: 048

REACTIONS (2)
  - Drug interaction [Unknown]
  - Serotonin syndrome [Unknown]

NARRATIVE: CASE EVENT DATE: 20220426
